FAERS Safety Report 9992356 (Version 1)
Quarter: 2014Q1

REPORT INFORMATION
  Report Type: Spontaneous
  Country: IT (occurrence: IT)
  Receive Date: 20140310
  Receipt Date: 20140310
  Transmission Date: 20141002
  Serious: Yes (Other)
  Sender: FDA-Public Use
  Company Number: IT-JNJFOC-20140217873

PATIENT
  Age: 50 Year
  Sex: Female

DRUGS (1)
  1. DOXORUBICIN HYDROCHLORIDE (CAELYX) [Suspect]
     Indication: BREAST CANCER
     Dosage: 2 MG/ML
     Route: 042
     Dates: start: 20130509, end: 20130607

REACTIONS (1)
  - Skin toxicity [Recovered/Resolved]
